FAERS Safety Report 4718788-9 (Version None)
Quarter: 2005Q3

REPORT INFORMATION
  Report Type: 
  Country: None (occurrence: None)
  Receive Date: 20050719
  Receipt Date: 20050706
  Transmission Date: 20060218
  Serious: Yes (Other)
  Sender: FDA-Public Use
  Company Number: 2005044039

PATIENT
  Sex: Female

DRUGS (6)
  1. DILANTIN [Suspect]
     Indication: CONVULSION
     Dosage: 600 MG (100 MG, 6 IN 1 D) ORAL
     Route: 048
  2. BUSPAR [Concomitant]
  3. HYDROXYZINE [Concomitant]
  4. EVISTA [Concomitant]
  5. PERPHENAZINE [Concomitant]
  6. PHENOBARBITAL [Concomitant]

REACTIONS (4)
  - CONDITION AGGRAVATED [None]
  - CONVULSION [None]
  - NASOPHARYNGITIS [None]
  - PHARMACEUTICAL PRODUCT COMPLAINT [None]
